FAERS Safety Report 17874312 (Version 1)
Quarter: 2020Q2

REPORT INFORMATION
  Report Type: Spontaneous
  Country: SE (occurrence: SE)
  Receive Date: 20200609
  Receipt Date: 20200609
  Transmission Date: 20200714
  Serious: Yes (Life-Threatening, Hospitalization)
  Sender: FDA-Public Use
  Company Number: SE-ROCHE-2613520

PATIENT
  Age: 29 Year
  Sex: Male

DRUGS (1)
  1. MABTHERA [Suspect]
     Active Substance: RITUXIMAB
     Indication: MULTIPLE SCLEROSIS
     Route: 065
     Dates: start: 20180404, end: 20200405

REACTIONS (2)
  - Ventricular fibrillation [Recovering/Resolving]
  - Myocarditis [Recovering/Resolving]

NARRATIVE: CASE EVENT DATE: 20200405
